FAERS Safety Report 12249990 (Version 1)
Quarter: 2016Q2

REPORT INFORMATION
  Report Type: Spontaneous
  Country: MA (occurrence: MA)
  Receive Date: 20160408
  Receipt Date: 20160408
  Transmission Date: 20160815
  Serious: Yes (Other)
  Sender: FDA-Public Use
  Company Number: MA-ABBVIE-16P-110-1600928-00

PATIENT
  Age: 8 Year
  Sex: Male
  Weight: 25 kg

DRUGS (3)
  1. ZECLAR [Suspect]
     Active Substance: CLARITHROMYCIN
     Indication: ANGINA PECTORIS
     Route: 048
  2. ZECLAR [Suspect]
     Active Substance: CLARITHROMYCIN
     Indication: BRONCHITIS
     Route: 065
  3. DOLIPRANE [Concomitant]
     Active Substance: ACETAMINOPHEN
     Indication: PYREXIA
     Route: 048

REACTIONS (2)
  - Dizziness [Recovered/Resolved]
  - Ataxia [Recovered/Resolved]

NARRATIVE: CASE EVENT DATE: 20160308
